FAERS Safety Report 12427966 (Version 2)
Quarter: 2016Q2

REPORT INFORMATION
  Report Type: Spontaneous
  Country: JP (occurrence: JP)
  Receive Date: 20160602
  Receipt Date: 20160615
  Transmission Date: 20160815
  Serious: Yes (Hospitalization)
  Sender: FDA-Public Use
  Company Number: JP-AMGEN-JPNSP2016070303

PATIENT
  Age: 9 Decade
  Sex: Male

DRUGS (2)
  1. PRALIA [Suspect]
     Active Substance: DENOSUMAB
     Indication: OSTEOPOROSIS
     Dosage: 60 MG, UNK
     Route: 058
  2. FORTEO [Concomitant]
     Active Substance: TERIPARATIDE

REACTIONS (2)
  - Fall [Unknown]
  - Compression fracture [Unknown]
